FAERS Safety Report 25103753 (Version 1)
Quarter: 2025Q1

REPORT INFORMATION
  Report Type: Spontaneous
  Country: US (occurrence: US)
  Receive Date: 20250321
  Receipt Date: 20250321
  Transmission Date: 20250409
  Serious: No
  Sender: TEVA
  Company Number: US-TEVA-VS-3307565

PATIENT
  Age: 30 Year
  Sex: Male

DRUGS (1)
  1. UZEDY [Suspect]
     Active Substance: RISPERIDONE
     Indication: Bipolar disorder
     Dosage: 50MG Q1M
     Route: 065
     Dates: start: 202408

REACTIONS (4)
  - Injection site nodule [Unknown]
  - Injection site pain [Unknown]
  - Injection site pruritus [Unknown]
  - Product use in unapproved indication [Unknown]
